FAERS Safety Report 8599141-7 (Version None)
Quarter: 2012Q3

REPORT INFORMATION
  Report Type: 
  Country: None (occurrence: None)
  Receive Date: 20120803
  Receipt Date: 20120723
  Transmission Date: 20120928
  Serious: Yes (Hospitalization)
  Sender: FDA-Public Use
  Company Number: 1363395

PATIENT
  Age: 57 Year
  Sex: Male

DRUGS (10)
  1. (CORTICOSTEROIDS) [Concomitant]
  2. FUROSEMIDE [Concomitant]
  3. (VASOPRESSIN) [Concomitant]
  4. NOREPINEPHRINE BITARTRATE [Concomitant]
  5. (ANESTHETICS) [Concomitant]
  6. AMIODARONE HCL [Suspect]
     Indication: ATRIAL FIBRILLATION
     Dosage: 150 MG,      , INTRAVENOUS   1 MG/MIN
     Route: 042
  7. AMIODARONE HCL [Suspect]
     Indication: ATRIAL FIBRILLATION
     Dosage: 150 MG,      , INTRAVENOUS   1 MG/MIN
     Route: 042
  8. PHENYLEPHRINE HYDROCHLORIDE [Concomitant]
  9. METOPROLOL TARTRATE [Concomitant]
  10. (I.V. SOLUTIONS) [Concomitant]

REACTIONS (8)
  - ALANINE AMINOTRANSFERASE INCREASED [None]
  - BLOOD CREATINE PHOSPHOKINASE INCREASED [None]
  - HEPATOTOXICITY [None]
  - POST PROCEDURAL COMPLICATION [None]
  - ASPARTATE AMINOTRANSFERASE INCREASED [None]
  - BLOOD LACTIC ACID INCREASED [None]
  - VOMITING [None]
  - ATRIAL FLUTTER [None]
